FAERS Safety Report 4995946-X (Version None)
Quarter: 2006Q2

REPORT INFORMATION
  Report Type: 
  Country: None (occurrence: None)
  Receive Date: 20060508
  Receipt Date: 20050311
  Transmission Date: 20061013
  Serious: Yes (Hospitalization, Other)
  Sender: FDA-Public Use
  Company Number: US-MERCK-0503USA02725

PATIENT
  Age: 67 Year
  Sex: Female
  Weight: 98 kg

DRUGS (5)
  1. VIOXX [Suspect]
     Indication: CARDIAC DISORDER
     Route: 048
     Dates: start: 20020101, end: 20030101
  2. ASPIRIN [Concomitant]
     Route: 065
  3. ALEVE (CAPLET) [Concomitant]
     Route: 065
  4. MOTRIN [Concomitant]
     Route: 065
  5. PERCOCET [Concomitant]
     Indication: PAIN
     Route: 065
     Dates: start: 20000101, end: 20040101

REACTIONS (12)
  - CARDIAC MURMUR [None]
  - DRUG HYPERSENSITIVITY [None]
  - DYSPNOEA [None]
  - GASTROINTESTINAL DISORDER [None]
  - GOUT [None]
  - HAEMATOCHEZIA [None]
  - HEADACHE [None]
  - HYPERTENSION [None]
  - MYOCARDIAL INFARCTION [None]
  - NEPHROLITHIASIS [None]
  - OEDEMA PERIPHERAL [None]
  - OVERDOSE [None]
